FAERS Safety Report 22165192 (Version 1)
Quarter: 2023Q2

REPORT INFORMATION
  Report Type: Report from Study
  Country: US (occurrence: US)
  Receive Date: 20230403
  Receipt Date: 20230403
  Transmission Date: 20230722
  Serious: Yes (Other)
  Sender: FDA-Public Use
  Company Number: US-UCBSA-2023015829

PATIENT

DRUGS (1)
  1. MIDAZOLAM [Suspect]
     Active Substance: MIDAZOLAM
     Indication: Sedation
     Dosage: UNK

REACTIONS (12)
  - Apnoea [Unknown]
  - Hypoxia [Unknown]
  - Sedation complication [Unknown]
  - Upper airway obstruction [Unknown]
  - Hypersensitivity [Unknown]
  - Vomiting [Unknown]
  - Neurological symptom [Unknown]
  - Cardiovascular disorder [Unknown]
  - Wheezing [Unknown]
  - Cough [Unknown]
  - Laryngospasm [Unknown]
  - Hiccups [Unknown]
